FAERS Safety Report 17150884 (Version 2)
Quarter: 2019Q4

REPORT INFORMATION
  Report Type: Spontaneous
  Country: SE (occurrence: SE)
  Receive Date: 20191213
  Receipt Date: 20191218
  Transmission Date: 20200122
  Serious: Yes (Other)
  Sender: FDA-Public Use
  Company Number: SE-ASTRAZENECA-2019SF77466

PATIENT
  Sex: Male

DRUGS (1)
  1. SYMBICORT [Suspect]
     Active Substance: BUDESONIDE\FORMOTEROL FUMARATE DIHYDRATE
     Route: 055

REACTIONS (7)
  - Oropharyngeal pain [Unknown]
  - Cough [Unknown]
  - Product use issue [Unknown]
  - Coronary artery occlusion [Unknown]
  - Rhinorrhoea [Unknown]
  - Headache [Unknown]
  - Dysphonia [Unknown]
